FAERS Safety Report 23742029 (Version 1)
Quarter: 2024Q2

REPORT INFORMATION
  Report Type: Spontaneous
  Country: US (occurrence: US)
  Receive Date: 20240415
  Receipt Date: 20240415
  Transmission Date: 20240716
  Serious: Yes (Hospitalization)
  Sender: FDA-Public Use
  Company Number: US-STRIDES ARCOLAB LIMITED-2024SP004161

PATIENT
  Age: 84 Year
  Sex: Male

DRUGS (4)
  1. HYDRALAZINE HYDROCHLORIDE [Suspect]
     Active Substance: HYDRALAZINE HYDROCHLORIDE
     Indication: Hypertension
     Dosage: 50 MILLIGRAM, BID
     Route: 065
  2. HYDRALAZINE HYDROCHLORIDE [Suspect]
     Active Substance: HYDRALAZINE HYDROCHLORIDE
     Dosage: 100 MILLIGRAM, BID
     Route: 065
  3. AMIODARONE [Concomitant]
     Active Substance: AMIODARONE
     Indication: Atrial fibrillation
     Dosage: UNK
     Route: 065
  4. AMIODARONE [Concomitant]
     Active Substance: AMIODARONE
     Dosage: UNK (DOSE REDUCED)
     Route: 065

REACTIONS (3)
  - Vasculitis [Recovered/Resolved]
  - Acute respiratory failure [Recovered/Resolved]
  - Acute kidney injury [Recovered/Resolved]
